FAERS Safety Report 23523483 (Version 1)
Quarter: 2024Q1

REPORT INFORMATION
  Report Type: Spontaneous
  Country: US (occurrence: US)
  Receive Date: 20240214
  Receipt Date: 20240214
  Transmission Date: 20240409
  Serious: Yes (Disabling)
  Sender: FDA-Public Use
  Company Number: US-BoehringerIngelheim-2024-BI-007258

PATIENT
  Age: 75 Year
  Sex: Male

DRUGS (2)
  1. JARDIANCE [Suspect]
     Active Substance: EMPAGLIFLOZIN
     Indication: Type 2 diabetes mellitus
     Dosage: HALF A 25MG TABLET ONCE A DAY
     Dates: start: 20221101, end: 20221117
  2. MORPHINE [Concomitant]
     Active Substance: MORPHINE
     Indication: Spinal cord injury

REACTIONS (8)
  - Neuropathy peripheral [Not Recovered/Not Resolved]
  - Rash [Recovering/Resolving]
  - Pollakiuria [Recovering/Resolving]
  - Renal impairment [Recovering/Resolving]
  - Trigger finger [Not Recovered/Not Resolved]
  - Asthenia [Not Recovered/Not Resolved]
  - Sciatic nerve injury [Recovering/Resolving]
  - Wrong technique in product usage process [Unknown]

NARRATIVE: CASE EVENT DATE: 20221101
